FAERS Safety Report 25536700 (Version 1)
Quarter: 2025Q3

REPORT INFORMATION
  Report Type: Spontaneous
  Country: KR (occurrence: KR)
  Receive Date: 20250709
  Receipt Date: 20250709
  Transmission Date: 20251020
  Serious: Yes (Hospitalization, Other)
  Sender: NOVITIUM PHARMA
  Company Number: KR-NOVITIUMPHARMA-2025KRNVP01549

PATIENT
  Age: 26 Year
  Sex: Male

DRUGS (13)
  1. PREDNISONE [Suspect]
     Active Substance: PREDNISONE
     Indication: Histiocytic sarcoma
  2. DEXAMETHASONE [Suspect]
     Active Substance: DEXAMETHASONE
     Indication: Histiocytic sarcoma
  3. ETOPOSIDE [Concomitant]
     Active Substance: ETOPOSIDE
     Indication: Histiocytic sarcoma
  4. VINCRISTINE [Concomitant]
     Active Substance: VINCRISTINE
     Indication: Histiocytic sarcoma
  5. CYCLOPHOSPHAMIDE [Concomitant]
     Active Substance: CYCLOPHOSPHAMIDE
     Indication: Histiocytic sarcoma
  6. DOXORUBICIN [Concomitant]
     Active Substance: DOXORUBICIN
     Indication: Histiocytic sarcoma
  7. VINCRISTINE [Concomitant]
     Active Substance: VINCRISTINE
     Indication: Histiocytic sarcoma
  8. ASPARAGINASE [Concomitant]
     Active Substance: ASPARAGINASE
     Indication: Histiocytic sarcoma
  9. IFOSFAMIDE [Concomitant]
     Active Substance: IFOSFAMIDE
     Indication: Histiocytic sarcoma
  10. CARBOPLATIN [Concomitant]
     Active Substance: CARBOPLATIN
     Indication: Histiocytic sarcoma
  11. METHYLPREDNISOLONE [Concomitant]
     Active Substance: METHYLPREDNISOLONE
     Indication: Histiocytic sarcoma
  12. CYTARABINE [Concomitant]
     Active Substance: CYTARABINE
     Indication: Histiocytic sarcoma
  13. CISPLATIN [Concomitant]
     Active Substance: CISPLATIN
     Indication: Histiocytic sarcoma

REACTIONS (2)
  - Pyrexia [Unknown]
  - Intestinal perforation [Recovered/Resolved]
